FAERS Safety Report 25165708 (Version 1)
Quarter: 2025Q2

REPORT INFORMATION
  Report Type: Spontaneous
  Country: US (occurrence: US)
  Receive Date: 20250407
  Receipt Date: 20250407
  Transmission Date: 20250716
  Serious: No
  Sender: LEO PHARM
  Company Number: US-LEO Pharma-378902

PATIENT
  Age: 74 Year
  Sex: Female

DRUGS (12)
  1. ADBRY [Suspect]
     Active Substance: TRALOKINUMAB-LDRM
     Indication: Dermatitis atopic
     Route: 058
  2. ADBRY [Suspect]
     Active Substance: TRALOKINUMAB-LDRM
     Indication: Psoriasis
     Route: 058
  3. TRIAMTERENE [Concomitant]
     Active Substance: TRIAMTERENE
     Indication: Product used for unknown indication
  4. OMEPRAZOLE [Concomitant]
     Active Substance: OMEPRAZOLE
     Indication: Product used for unknown indication
  5. Aspirin Childrens (Cinnamon) [Concomitant]
     Indication: Product used for unknown indication
  6. DULOXETINE HYDROCHLORIDE [Concomitant]
     Active Substance: DULOXETINE HYDROCHLORIDE
     Indication: Product used for unknown indication
  7. GABAPENTIN [Concomitant]
     Active Substance: GABAPENTIN
     Indication: Product used for unknown indication
  8. D3 5000 [Concomitant]
     Indication: Product used for unknown indication
  9. Omega 3-6-9 Complex [Concomitant]
     Indication: Product used for unknown indication
  10. HERBALS\TURMERIC [Concomitant]
     Active Substance: HERBALS\TURMERIC
     Indication: Product used for unknown indication
  11. NOVOLOG [Concomitant]
     Active Substance: INSULIN ASPART
     Indication: Product used for unknown indication
  12. BASAGLAR KWIKPEN [Concomitant]
     Active Substance: INSULIN GLARGINE
     Indication: Product used for unknown indication

REACTIONS (4)
  - Peripheral swelling [Unknown]
  - Erythema [Unknown]
  - Pain in extremity [Unknown]
  - Burning sensation [Unknown]
